FAERS Safety Report 12010459 (Version 4)
Quarter: 2016Q1

REPORT INFORMATION
  Report Type: Spontaneous
  Country: IT (occurrence: IT)
  Receive Date: 20160205
  Receipt Date: 20160328
  Transmission Date: 20160526
  Serious: Yes (Other)
  Sender: FDA-Public Use
  Company Number: IT-INCYTE CORPORATION-2016IN000596

PATIENT
  Age: 71 Year
  Sex: Male
  Weight: 80 kg

DRUGS (6)
  1. ZEFFIX [Concomitant]
     Active Substance: LAMIVUDINE
     Indication: ANTIVIRAL PROPHYLAXIS
     Dosage: 100 MG, UNK
     Route: 048
     Dates: start: 20151028, end: 20160308
  2. JAKAFI [Suspect]
     Active Substance: RUXOLITINIB
     Indication: MYELOFIBROSIS
     Dosage: 40 MG, QD (20 MG BID EVERY 12 HOURS)
     Route: 048
     Dates: start: 20140924
  3. CARDIOASPIRIN [Concomitant]
     Active Substance: ASPIRIN
     Indication: PRODUCT USED FOR UNKNOWN INDICATION
     Dosage: 100 MG, (AFTER FOOD INTAKE)
     Route: 048
  4. CARDIOASPIRIN [Concomitant]
     Active Substance: ASPIRIN
     Dosage: 100 MG, (AFTER FOOD INTAKE)
     Route: 048
  5. ACYCLOVIR. [Concomitant]
     Active Substance: ACYCLOVIR
     Indication: PRODUCT USED FOR UNKNOWN INDICATION
     Dosage: 400 MG (1 TABLET HOUR 08.00 A.M. AND 1 TABLET HOUR 08.00 P.M.), UNK
     Route: 065
  6. JAKAFI [Suspect]
     Active Substance: RUXOLITINIB
     Dosage: 20 MG, QD
     Route: 048

REACTIONS (10)
  - Pruritus [Recovered/Resolved]
  - Weight increased [Unknown]
  - Varicella virus test positive [Unknown]
  - Splenomegaly [Unknown]
  - Hepatitis B [Recovered/Resolved]
  - Hepatomegaly [Unknown]
  - Night sweats [Recovered/Resolved]
  - Arthralgia [Unknown]
  - Hepatic steatosis [Unknown]
  - Chalazion [Unknown]

NARRATIVE: CASE EVENT DATE: 20150904
